FAERS Safety Report 18695527 (Version 1)
Quarter: 2021Q1

REPORT INFORMATION
  Report Type: Spontaneous
  Country: JP (occurrence: JP)
  Receive Date: 20210104
  Receipt Date: 20210104
  Transmission Date: 20210419
  Serious: Yes (Other)
  Sender: FDA-Public Use
  Company Number: JP-LUPIN PHARMACEUTICALS INC.-2020-06761

PATIENT
  Age: 42 Month
  Sex: Male

DRUGS (2)
  1. CLOBAZAM. [Suspect]
     Active Substance: CLOBAZAM
     Indication: CONVULSION IN CHILDHOOD
     Dosage: UNK
     Route: 065
  2. DIVALPROEX SODIUM. [Suspect]
     Active Substance: DIVALPROEX SODIUM
     Indication: CONVULSION IN CHILDHOOD
     Dosage: UNK
     Route: 065

REACTIONS (1)
  - Drug ineffective [Unknown]
